FAERS Safety Report 8593125-0 (Version None)
Quarter: 2012Q3

REPORT INFORMATION
  Report Type: 
  Country: None (occurrence: None)
  Receive Date: 20120814
  Receipt Date: 19950522
  Transmission Date: 20120928
  Serious: Yes (Hospitalization, Other)
  Sender: FDA-Public Use
  Company Number: US-ROCHE-1100991

PATIENT
  Age: 62 Year
  Sex: Male

DRUGS (8)
  1. NITROGLYCERIN [Concomitant]
  2. HEPARIN [Concomitant]
     Dosage: 1000 UNITS PER HOUR
     Route: 040
  3. ACTIVASE [Suspect]
     Indication: CARDIAC FAILURE CONGESTIVE
  4. LASIX [Concomitant]
  5. NITROGLYCERINE IV [Concomitant]
     Route: 042
  6. ASPIRIN [Concomitant]
  7. DIGOXIN [Concomitant]
  8. MORPHINE [Concomitant]

REACTIONS (3)
  - HYPOTENSION [None]
  - BRADYCARDIA [None]
  - CHEST PAIN [None]
